FAERS Safety Report 6401571-6 (Version None)
Quarter: 2009Q4

REPORT INFORMATION
  Report Type: 
  Country: None (occurrence: None)
  Receive Date: 20091009
  Receipt Date: 20091001
  Transmission Date: 20100525
  Serious: Yes (Life-Threatening)
  Sender: FDA-Public Use
  Company Number: 014833

PATIENT
  Age: 60 Year
  Sex: Male

DRUGS (2)
  1. VERAPAMIL EXTENDED-RELEASE [Suspect]
     Indication: HYPERTENSION
     Dosage: 240 MG, SINGLE, ORAL
     Route: 048
  2. CLOPIDOGREL [Suspect]
     Dosage: 75 MG, SINGLE, UNK

REACTIONS (8)
  - ACUTE RESPIRATORY DISTRESS SYNDROME [None]
  - ASCITES [None]
  - ATRIOVENTRICULAR BLOCK [None]
  - BLOOD PRESSURE DECREASED [None]
  - DRUG TOXICITY [None]
  - INTESTINAL ISCHAEMIA [None]
  - SUICIDE ATTEMPT [None]
  - WHITE BLOOD CELL COUNT INCREASED [None]
